FAERS Safety Report 11049428 (Version 2)
Quarter: 2015Q3

REPORT INFORMATION
  Report Type: Spontaneous
  Country: US (occurrence: US)
  Receive Date: 20150420
  Receipt Date: 20150720
  Transmission Date: 20151125
  Serious: No
  Sender: FDA-Public Use
  Company Number: US-GILEAD-2015-0148710

PATIENT
  Age: 60 Year
  Sex: Male

DRUGS (2)
  1. XIFAXAN [Interacting]
     Active Substance: RIFAXIMIN
  2. HARVONI [Suspect]
     Active Substance: LEDIPASVIR\SOFOSBUVIR
     Indication: PRODUCT USED FOR UNKNOWN INDICATION
     Dosage: UNK
     Dates: start: 201502

REACTIONS (9)
  - Confusional state [Unknown]
  - Drug interaction [Unknown]
  - Somnolence [Unknown]
  - Oedema peripheral [Unknown]
  - Urticaria [Unknown]
  - Nervousness [Unknown]
  - Abdominal distension [Unknown]
  - Memory impairment [Unknown]
  - Fatigue [Unknown]

NARRATIVE: CASE EVENT DATE: 20150410
